FAERS Safety Report 6529281-5 (Version None)
Quarter: 2010Q1

REPORT INFORMATION
  Report Type: 
  Country: None (occurrence: None)
  Receive Date: 20100107
  Receipt Date: 20091207
  Transmission Date: 20100710
  Serious: No
  Sender: FDA-Public Use
  Company Number: US-BAYER-200928666NA

PATIENT
  Age: 56 Year
  Sex: Male

DRUGS (3)
  1. BETAPACE [Suspect]
     Indication: DRUG USE FOR UNKNOWN INDICATION
     Dosage: TOTAL DAILY DOSE: 160 MG
     Dates: start: 20090728
  2. BETAPACE [Suspect]
     Dosage: 120 IN THE AM AND 80 IN THE PM
     Dates: start: 20090729
  3. BETAPACE [Suspect]
     Dates: start: 20090730

REACTIONS (1)
  - VISION BLURRED [None]
